FAERS Safety Report 4682657-3 (Version None)
Quarter: 2005Q2

REPORT INFORMATION
  Report Type: 
  Country: None (occurrence: None)
  Receive Date: 20050606
  Receipt Date: 20050418
  Transmission Date: 20051028
  Serious: Yes (Other)
  Sender: FDA-Public Use
  Company Number: J200501515

PATIENT
  Age: 69 Year
  Sex: Female

DRUGS (2)
  1. SAWACILLIN [Suspect]
     Indication: INFECTION PROPHYLAXIS
     Dosage: 250MG THREE TIMES PER DAY
     Route: 048
     Dates: start: 20050407, end: 20050407
  2. EMPYNASE [Concomitant]
     Route: 048
     Dates: start: 20050407, end: 20050407

REACTIONS (7)
  - DRUG ERUPTION [None]
  - DYSPNOEA [None]
  - ERYTHEMA [None]
  - LOCAL SWELLING [None]
  - OEDEMA PERIPHERAL [None]
  - SWELLING [None]
  - SWELLING FACE [None]
